FAERS Safety Report 15975931 (Version 1)
Quarter: 2019Q1

REPORT INFORMATION
  Report Type: Spontaneous
  Country: US (occurrence: US)
  Receive Date: 20190218
  Receipt Date: 20190218
  Transmission Date: 20190418
  Serious: No
  Sender: FDA-Public Use
  Company Number: US-LEO PHARMA-316836

PATIENT
  Age: 60 Year
  Sex: Female

DRUGS (2)
  1. DAIVOBET [Suspect]
     Active Substance: BETAMETHASONE DIPROPIONATE\CALCIPOTRIENE
     Indication: PSORIASIS
     Dosage: CALCIPOTRIENE 0.005% AND BETAMETHASONE DIPROPIONATE 0.064%?APPLY AS NEEDED
     Route: 061
  2. FLUOCINOLONE [Concomitant]
     Active Substance: FLUOCINOLONE
     Indication: DRY SKIN
     Dosage: MORE REGULAR BASIS

REACTIONS (4)
  - Dry skin [Not Recovered/Not Resolved]
  - Alopecia [Not Recovered/Not Resolved]
  - Wrong technique in product usage process [Unknown]
  - Trichorrhexis [Not Recovered/Not Resolved]
